FAERS Safety Report 12933643 (Version 1)
Quarter: 2016Q4

REPORT INFORMATION
  Report Type: Report from Study
  Country: JP (occurrence: JP)
  Receive Date: 20161111
  Receipt Date: 20161111
  Transmission Date: 20170207
  Serious: Yes (Other)
  Sender: FDA-Public Use
  Company Number: JP-BAXTER-2016BAX057187

PATIENT
  Sex: Male

DRUGS (1)
  1. UROMATIC S UROLOGICAL IRRIGATION SOLUTION [Suspect]
     Active Substance: SORBITOL
     Indication: TRANSURETHRAL PROSTATECTOMY
     Route: 066

REACTIONS (1)
  - Transurethral resection syndrome [Recovered/Resolved]
